FAERS Safety Report 10458832 (Version 1)
Quarter: 2014Q3

REPORT INFORMATION
  Report Type: Spontaneous
  Country: US (occurrence: None)
  Receive Date: 20140916
  Receipt Date: 20140916
  Transmission Date: 20150326
  Serious: Yes (Hospitalization)
  Sender: FDA-Public Use
  Company Number: None

PATIENT
  Age: 36 Year
  Sex: Male
  Weight: 81.65 kg

DRUGS (2)
  1. CLOZARIL [Suspect]
     Active Substance: CLOZAPINE
     Indication: SCHIZOPHRENIA
     Dosage: 2 PILLS BEDTIME BY MOUTH
     Route: 048
     Dates: start: 20140809, end: 20140829
  2. HALDOL [Concomitant]
     Active Substance: HALOPERIDOL

REACTIONS (4)
  - Confusional state [None]
  - Back pain [None]
  - Headache [None]
  - Amnesia [None]

NARRATIVE: CASE EVENT DATE: 20140829
